FAERS Safety Report 10062311 (Version 1)
Quarter: 2014Q2

REPORT INFORMATION
  Report Type: Spontaneous
  Country: US (occurrence: US)
  Receive Date: 20140407
  Receipt Date: 20140407
  Transmission Date: 20141212
  Serious: No
  Sender: FDA-Public Use
  Company Number: US-GLAXOSMITHKLINE-A1057496A

PATIENT
  Age: 43 Year
  Sex: Female

DRUGS (3)
  1. BENLYSTA [Suspect]
     Indication: SYSTEMIC LUPUS ERYTHEMATOSUS
     Dosage: 400MG SINGLE DOSE
     Route: 042
     Dates: start: 20140117
  2. BENADRYL [Concomitant]
  3. XYZAL [Concomitant]

REACTIONS (7)
  - Dysphagia [Not Recovered/Not Resolved]
  - Nausea [Unknown]
  - Headache [Unknown]
  - Hot flush [Unknown]
  - Urticaria [Unknown]
  - Muscle tightness [Unknown]
  - Hypersensitivity [Unknown]
